FAERS Safety Report 18749836 (Version 1)
Quarter: 2021Q1

REPORT INFORMATION
  Report Type: Spontaneous
  Country: FR (occurrence: FR)
  Receive Date: 20210117
  Receipt Date: 20210117
  Transmission Date: 20210419
  Serious: Yes (Other)
  Sender: FDA-Public Use
  Company Number: FR-UNICHEM PHARMACEUTICALS (USA) INC-UCM202101-000027

PATIENT

DRUGS (4)
  1. ALFENTANIL. [Concomitant]
     Active Substance: ALFENTANIL
     Indication: SEDATION
     Dosage: UNKNOWN
  2. ROPIVACAINE. [Suspect]
     Active Substance: ROPIVACAINE HYDROCHLORIDE
     Indication: ANAESTHESIA
     Dosage: 1 PERCENT WITH A VOLUME OF 8 ML
  3. CLONIDINE HCL [Suspect]
     Active Substance: CLONIDINE HYDROCHLORIDE
     Indication: ANAESTHESIA
     Dosage: 75 MICROGM OF CLONIDINE AS AN ADJUVANT (7.5 MICROG PER ML).
  4. MIDAZOLAM. [Concomitant]
     Active Substance: MIDAZOLAM
     Indication: SEDATION
     Dosage: UNKNOWN

REACTIONS (2)
  - Amaurosis [Recovered/Resolved]
  - Product use in unapproved indication [Unknown]
